FAERS Safety Report 19634078 (Version 2)
Quarter: 2021Q3

REPORT INFORMATION
  Report Type: Spontaneous
  Country: US (occurrence: US)
  Receive Date: 20210730
  Receipt Date: 20210831
  Transmission Date: 20211014
  Serious: No
  Sender: FDA-Public Use
  Company Number: US-SA-2021SA245613

PATIENT
  Age: 29 Year
  Sex: Female

DRUGS (1)
  1. DUPIXENT [Suspect]
     Active Substance: DUPILUMAB
     Indication: DERMATITIS ATOPIC
     Dosage: 300 MG, QOW
     Route: 058
     Dates: start: 20210506

REACTIONS (7)
  - Dermatitis atopic [Unknown]
  - Erythema [Unknown]
  - Rash [Unknown]
  - Nausea [Unknown]
  - Rash [Recovered/Resolved]
  - Dry skin [Unknown]
  - Skin irritation [Recovered/Resolved]

NARRATIVE: CASE EVENT DATE: 2021
